FAERS Safety Report 8977878 (Version 2)
Quarter: 2013Q1

REPORT INFORMATION
  Report Type: Spontaneous
  Country: US (occurrence: US)
  Receive Date: 20121220
  Receipt Date: 20130207
  Transmission Date: 20140127
  Serious: Yes (Death)
  Sender: FDA-Public Use
  Company Number: PHEH2012US024980

PATIENT
  Sex: Female

DRUGS (9)
  1. RECLAST [Suspect]
     Dosage: 5MG IN 100 ML
     Route: 042
     Dates: start: 20100426
  2. RECLAST [Suspect]
     Dosage: 5MG IN 100 ML
     Route: 042
  3. TYLENOL [Concomitant]
     Dosage: 350 MG, UNK
     Route: 048
  4. ALBUTEROL [Concomitant]
     Dosage: 3 ML, Q4H
  5. BUPROPION HCL [Concomitant]
     Dosage: TAKE ONE PILL A DAY FOR A WEEK AND THEN 1 PILL 2 TIMES A DAY AS TOLERATED
     Route: 048
  6. CALTRATE PLUS [Concomitant]
     Dosage: 1 DF, QD
     Route: 048
  7. GABAPENTIN [Concomitant]
     Dosage: 1 PILL AT BED TIME FOR A WEEK AND THEN 2 PILLS A DAY AS TOLERATED
     Route: 048
  8. OMEPRAZOLE [Concomitant]
     Dosage: 20 MG, BID
     Route: 048
  9. PROVENTIL HFA [Concomitant]
     Dosage: 2 DF, Q6H

REACTIONS (1)
  - Death [Fatal]
